FAERS Safety Report 7128186-9 (Version None)
Quarter: 2010Q4

REPORT INFORMATION
  Report Type: 
  Country: None (occurrence: None)
  Receive Date: 20101130
  Receipt Date: 20101116
  Transmission Date: 20110411
  Serious: Yes (Hospitalization)
  Sender: FDA-Public Use
  Company Number: FR-TEVA-256067ISR

PATIENT
  Sex: Male

DRUGS (10)
  1. AZILECT [Suspect]
     Indication: PARKINSON'S DISEASE
     Route: 048
     Dates: start: 20100614, end: 20100729
  2. PRISTINAMYCIN [Suspect]
     Indication: WOUND
     Route: 048
     Dates: start: 20100719, end: 20100726
  3. FUSIDIC ACID [Suspect]
     Indication: ERYTHRODERMIC PSORIASIS
     Route: 048
     Dates: start: 20100812, end: 20100816
  4. ROPINIROLE HYDROCHLORIDE [Concomitant]
  5. MADOPAR [Concomitant]
  6. FLUINDIONE [Concomitant]
  7. SPIRONOLACTONE [Concomitant]
  8. DIOSMINE [Concomitant]
  9. ZOLPIDEM [Concomitant]
  10. FUROSEMIDE [Concomitant]

REACTIONS (8)
  - ACUTE GENERALISED EXANTHEMATOUS PUSTULOSIS [None]
  - ERYSIPELAS [None]
  - ERYTHRODERMIC PSORIASIS [None]
  - GENERALISED ERYTHEMA [None]
  - OEDEMA PERIPHERAL [None]
  - PUSTULAR PSORIASIS [None]
  - SKIN PLAQUE [None]
  - TOXIC SKIN ERUPTION [None]
